FAERS Safety Report 11140317 (Version 1)
Quarter: 2015Q2

REPORT INFORMATION
  Report Type: Report from Study
  Country: PL (occurrence: PL)
  Receive Date: 20150527
  Receipt Date: 20150527
  Transmission Date: 20150821
  Serious: Yes (Hospitalization)
  Sender: FDA-Public Use
  Company Number: PL-JNJFOC-20150501999

PATIENT
  Age: 8 Year
  Sex: Female
  Weight: 34 kg

DRUGS (36)
  1. BUDESONID [Concomitant]
     Active Substance: BUDESONIDE
     Indication: UPPER RESPIRATORY TRACT INFECTION
     Route: 055
     Dates: start: 20150113, end: 20150114
  2. BENZYDAMINE HYDROCHLORIDE [Concomitant]
     Active Substance: BENZYDAMINE HYDROCHLORIDE
     Indication: UPPER RESPIRATORY TRACT INFECTION
     Route: 048
     Dates: start: 20150113, end: 20150117
  3. MUTAFLOR [Concomitant]
     Indication: GASTRITIS
     Route: 048
     Dates: start: 20140913
  4. MUTAFLOR [Concomitant]
     Indication: GASTRITIS
     Dosage: 1 CAPSULE
     Route: 048
     Dates: start: 20140722, end: 20140731
  5. MUTAFLOR [Concomitant]
     Indication: GASTRITIS
     Route: 048
     Dates: start: 20141217, end: 20141222
  6. MUTAFLOR [Concomitant]
     Indication: PROPHYLAXIS
     Route: 048
     Dates: start: 20141217, end: 20141222
  7. MUTAFLOR [Concomitant]
     Indication: PROPHYLAXIS
     Route: 048
     Dates: start: 20140913
  8. PARACETAMOL [Concomitant]
     Active Substance: ACETAMINOPHEN
     Indication: NASOPHARYNGITIS
     Route: 048
     Dates: start: 20140904, end: 20140904
  9. BUTAMIRATE CITRATE [Concomitant]
     Active Substance: BUTAMIRATE CITRATE
     Indication: COUGH
     Route: 048
     Dates: start: 20141121, end: 20141128
  10. BUDESONID [Concomitant]
     Active Substance: BUDESONIDE
     Indication: UPPER RESPIRATORY TRACT INFECTION
     Route: 055
     Dates: start: 20150118, end: 20150118
  11. BUDESONID [Concomitant]
     Active Substance: BUDESONIDE
     Indication: COUGH
     Route: 055
     Dates: start: 20150118, end: 20150118
  12. MUTAFLOR [Concomitant]
     Indication: DIARRHOEA
     Route: 048
     Dates: start: 20140801, end: 20140801
  13. MUTAFLOR [Concomitant]
     Indication: PROPHYLAXIS
     Route: 048
     Dates: start: 20140801, end: 20140801
  14. PARACETAMOL [Concomitant]
     Active Substance: ACETAMINOPHEN
     Indication: UPPER RESPIRATORY TRACT INFECTION
     Route: 048
     Dates: start: 20140904, end: 20140904
  15. PARACETAMOL [Concomitant]
     Active Substance: ACETAMINOPHEN
     Indication: NASOPHARYNGITIS
     Route: 048
     Dates: start: 20140111, end: 20140112
  16. BUDESONID [Concomitant]
     Active Substance: BUDESONIDE
     Indication: UPPER RESPIRATORY TRACT INFECTION
     Route: 055
     Dates: start: 20141022, end: 20141024
  17. MUTAFLOR [Concomitant]
     Indication: DIARRHOEA
     Route: 048
     Dates: start: 20141217, end: 20141222
  18. BUTAMIRATE CITRATE [Concomitant]
     Active Substance: BUTAMIRATE CITRATE
     Indication: UPPER RESPIRATORY TRACT INFECTION
     Route: 048
     Dates: start: 20140912, end: 20140912
  19. BUTAMIRATE CITRATE [Concomitant]
     Active Substance: BUTAMIRATE CITRATE
     Indication: UPPER RESPIRATORY TRACT INFECTION
     Route: 048
     Dates: start: 20141121, end: 20141128
  20. NACL 0.9% [Concomitant]
     Indication: COUGH
     Route: 055
     Dates: start: 20141014, end: 20141021
  21. BUDESONID [Concomitant]
     Active Substance: BUDESONIDE
     Indication: UPPER RESPIRATORY TRACT INFECTION
     Route: 055
     Dates: start: 20150115, end: 20150116
  22. BUDESONID [Concomitant]
     Active Substance: BUDESONIDE
     Indication: COUGH
     Route: 055
     Dates: start: 20150115, end: 20150116
  23. MUTAFLOR [Concomitant]
     Indication: PROPHYLAXIS
     Dosage: 1 CAPSULE
     Route: 048
     Dates: start: 20140722, end: 20140731
  24. NACL 0.9% [Concomitant]
     Indication: COUGH
     Route: 055
     Dates: start: 20141022, end: 20141022
  25. NACL 0.9% [Concomitant]
     Indication: COUGH
     Route: 055
     Dates: start: 20141024, end: 20141024
  26. BENZYDAMINE HYDROCHLORIDE [Concomitant]
     Active Substance: BENZYDAMINE HYDROCHLORIDE
     Indication: UPPER RESPIRATORY TRACT INFECTION
     Route: 048
     Dates: start: 20150118, end: 20150119
  27. SIMPONI [Suspect]
     Active Substance: GOLIMUMAB
     Indication: COLITIS ULCERATIVE
     Route: 058
     Dates: start: 20140722
  28. MUTAFLOR [Concomitant]
     Indication: DIARRHOEA
     Route: 048
     Dates: start: 20140913
  29. PARACETAMOL [Concomitant]
     Active Substance: ACETAMINOPHEN
     Indication: UPPER RESPIRATORY TRACT INFECTION
     Route: 048
     Dates: start: 20140111, end: 20140112
  30. CALCIUM CARBONATE. [Concomitant]
     Active Substance: CALCIUM CARBONATE
     Indication: NASOPHARYNGITIS
     Route: 048
     Dates: start: 20140903, end: 20140904
  31. BUDESONID [Concomitant]
     Active Substance: BUDESONIDE
     Indication: COUGH
     Route: 055
     Dates: start: 20141022, end: 20141024
  32. MUTAFLOR [Concomitant]
     Indication: DIARRHOEA
     Dosage: 1 CAPSULE
     Route: 048
     Dates: start: 20140722, end: 20140731
  33. MUTAFLOR [Concomitant]
     Indication: GASTRITIS
     Route: 048
     Dates: start: 20140801, end: 20140801
  34. BUTAMIRATE CITRATE [Concomitant]
     Active Substance: BUTAMIRATE CITRATE
     Indication: COUGH
     Route: 048
     Dates: start: 20140912, end: 20140912
  35. MUCOSOLVAN [Concomitant]
     Active Substance: AMBROXOL\CLENBUTEROL
     Indication: UPPER RESPIRATORY TRACT INFECTION
     Route: 048
     Dates: start: 20141121, end: 20141128
  36. BUDESONID [Concomitant]
     Active Substance: BUDESONIDE
     Indication: COUGH
     Route: 055
     Dates: start: 20150113, end: 20150114

REACTIONS (2)
  - Respiratory tract infection [Recovered/Resolved]
  - Urinary tract infection [Recovered/Resolved]

NARRATIVE: CASE EVENT DATE: 20150426
